FAERS Safety Report 10959210 (Version 2)
Quarter: 2015Q2

REPORT INFORMATION
  Report Type: Spontaneous
  Country: US (occurrence: US)
  Receive Date: 20150327
  Receipt Date: 20150524
  Transmission Date: 20150821
  Serious: No
  Sender: FDA-Public Use
  Company Number: US-JNJFOC-20141112094

PATIENT
  Sex: Female
  Weight: 113.4 kg

DRUGS (1)
  1. DURAGESIC [Suspect]
     Active Substance: FENTANYL
     Indication: PAIN
     Route: 062
     Dates: start: 2013, end: 2014

REACTIONS (1)
  - Adverse event [Recovered/Resolved]

NARRATIVE: CASE EVENT DATE: 2014
